FAERS Safety Report 6675774-X (Version None)
Quarter: 2010Q2

REPORT INFORMATION
  Report Type: 
  Country: None (occurrence: None)
  Receive Date: 20100411
  Receipt Date: 20100409
  Transmission Date: 20101027
  Serious: Yes (Other)
  Sender: FDA-Public Use
  Company Number: US-ABBOTT-10P-163-0634865-00

PATIENT
  Sex: Female
  Weight: 49.94 kg

DRUGS (11)
  1. HUMIRA [Suspect]
     Indication: RHEUMATOID ARTHRITIS
     Route: 058
     Dates: start: 20080207
  2. PROAIR HFA [Concomitant]
     Indication: LUNG DISORDER
     Dosage: PUMP
  3. ACIPHEX [Concomitant]
     Indication: GASTRIC DISORDER
  4. ASPIRIN [Concomitant]
     Indication: DRUG USE FOR UNKNOWN INDICATION
  5. CLONIDINE [Concomitant]
     Indication: BLOOD PRESSURE
  6. DARVOCET [Concomitant]
     Indication: PAIN
  7. DIGOXIN [Concomitant]
     Indication: CARDIAC DISORDER
  8. FOLIC ACID [Concomitant]
     Indication: DRUG USE FOR UNKNOWN INDICATION
  9. NORVASC [Concomitant]
     Indication: BLOOD PRESSURE
  10. PLAQUENIL [Concomitant]
     Indication: DRUG USE FOR UNKNOWN INDICATION
  11. REMION [Concomitant]
     Indication: DRUG USE FOR UNKNOWN INDICATION

REACTIONS (2)
  - MEDICAL DEVICE COMPLICATION [None]
  - RENAL DISORDER [None]
